FAERS Safety Report 7545030 (Version 3)
Quarter: 2013Q4

REPORT INFORMATION
  Report Type: Spontaneous
  Country: US (occurrence: US)
  Receive Date: 20100818
  Receipt Date: 20131022
  Transmission Date: 20140711
  Serious: Yes (Hospitalization)
  Sender: FDA-Public Use
  Company Number: US-BAYER-201030658NA

PATIENT
  Age: 32 Year
  Sex: Female
  Weight: 67 kg

DRUGS (20)
  1. YAZ [Suspect]
     Dosage: UNK UNK, UNK
     Route: 048
     Dates: end: 2008
  2. SYNTHROID [Concomitant]
     Dosage: 250 MCG/24HR, QD
  3. ATIVAN [Concomitant]
     Dosage: 1 MG, PRN
  4. CALCIUM [Concomitant]
  5. THYROGEN [Concomitant]
  6. PROPRANOLOL [Concomitant]
  7. STEROID/ BENEDRYL PREMEDICATIONS [Concomitant]
     Indication: PREMEDICATION
  8. LIDOCAINE VISCOUS [Concomitant]
     Dosage: UNK
     Dates: start: 20080504
  9. HYDROCODONE W/APAP [Concomitant]
     Dates: start: 20080401
  10. HYDROCODONE W/IBUPROFEN [Concomitant]
     Dosage: UNK
     Dates: start: 20080410
  11. LORAZEPAM [Concomitant]
     Dosage: UNK
     Dates: start: 20080506
  12. ANAPROX DS [Concomitant]
     Dosage: 550 MG, PRN
     Route: 048
  13. ALBUTEROL [Concomitant]
  14. BENZONATATE [Concomitant]
     Indication: COUGH
  15. FEMCON [Concomitant]
  16. TUSSIONEX [HYDROCODONE,PHENYLTOLOXAMINE] [Concomitant]
     Dosage: UNK
     Dates: start: 20080506
  17. TYLENOL WITH CODEINE [Concomitant]
     Dosage: 300-30MG TABLETS; 15 DISPENSED
     Dates: start: 20080601
  18. AZITHROMYCIN [Concomitant]
     Dosage: 250 MG TABLETS; 6 DISPENSED
     Dates: start: 20080619
  19. VENTOLIN [Concomitant]
     Indication: COUGH
     Dosage: 2 PUFFS EVERY FOUR HOURS AS NEEDED
     Route: 045
     Dates: start: 20080601
  20. VICODIN [Concomitant]

REACTIONS (4)
  - Cerebrovascular accident [Unknown]
  - Pain [Unknown]
  - Hemiplegia [Unknown]
  - Blindness transient [Unknown]
